FAERS Safety Report 6643133-1 (Version None)
Quarter: 2010Q1

REPORT INFORMATION
  Report Type: 
  Country: None (occurrence: None)
  Receive Date: 20100319
  Receipt Date: 20100309
  Transmission Date: 20100710
  Serious: Yes (Hospitalization, Other)
  Sender: FDA-Public Use
  Company Number: PHHY2009US54917

PATIENT
  Sex: Female

DRUGS (13)
  1. EXJADE [Suspect]
     Indication: SICKLE CELL ANAEMIA
     Dosage: 500 MG, QID
  2. EXJADE [Suspect]
     Indication: IRON METABOLISM DISORDER
  3. EXJADE [Suspect]
     Indication: IRON OVERLOAD
  4. FOLIC ACID [Concomitant]
     Dosage: 1 MG, QD
     Route: 048
  5. COUMADIN [Concomitant]
     Dosage: 15 MG, QD
     Route: 048
  6. HYDREA [Concomitant]
     Dosage: 500 MG, BID
     Route: 048
  7. METHADONE HCL [Concomitant]
     Dosage: 10 MG, BID
     Route: 048
  8. FLONASE [Concomitant]
     Dosage: 2 SPRAYS EACH NOSTRIL DAILY
  9. CLARITIN [Concomitant]
     Dosage: 10 MG, QD
     Route: 048
  10. PHENERGAN HCL [Concomitant]
     Dosage: 12.5 MG, ONE, Q6H, PRN
     Route: 048
  11. PERCOCET [Concomitant]
     Dosage: 12.5 MG, ONE, Q6H, PRN
     Route: 048
  12. HYDROXYUREA [Concomitant]
     Dosage: 500 MG, BID
     Route: 048
  13. FIORICET [Concomitant]
     Dosage: ONE TAB, Q6-8 H, PRN
     Route: 048

REACTIONS (7)
  - BACK PAIN [None]
  - DEVICE RELATED INFECTION [None]
  - HEADACHE [None]
  - PAIN IN EXTREMITY [None]
  - SICKLE CELL ANAEMIA WITH CRISIS [None]
  - STAPHYLOCOCCAL SEPSIS [None]
  - VASCULAR OCCLUSION [None]
